FAERS Safety Report 25773157 (Version 1)
Quarter: 2025Q3

REPORT INFORMATION
  Report Type: Spontaneous
  Country: US (occurrence: US)
  Receive Date: 20250908
  Receipt Date: 20250908
  Transmission Date: 20251021
  Serious: No
  Sender: SPRINGWORKS THERAPEUTIC
  Company Number: US-SPRINGWORKS THERAPEUTICS-SW-002920

PATIENT
  Age: 39 Year
  Sex: Male

DRUGS (2)
  1. OGSIVEO [Suspect]
     Active Substance: NIROGACESTAT HYDROBROMIDE
     Indication: Desmoid tumour
     Dosage: 150 MILLIGRAM, BID
     Dates: start: 20250121
  2. OGSIVEO [Suspect]
     Active Substance: NIROGACESTAT HYDROBROMIDE
     Dosage: 100 MILLIGRAM, BID
     Dates: start: 20250410

REACTIONS (1)
  - Testicular cyst [Not Recovered/Not Resolved]

NARRATIVE: CASE EVENT DATE: 20250609
